FAERS Safety Report 7246890-9 (Version None)
Quarter: 2011Q1

REPORT INFORMATION
  Report Type: 
  Country: None (occurrence: None)
  Receive Date: 20110127
  Receipt Date: 20110124
  Transmission Date: 20110831
  Serious: Yes (Death)
  Sender: FDA-Public Use
  Company Number: PHEH2007US16428

PATIENT
  Sex: Male
  Weight: 65.8 kg

DRUGS (5)
  1. NEUPOGEN [Concomitant]
     Dosage: DAY 8-12 EVERY 21 DAYS
     Route: 058
  2. PROCRIT [Concomitant]
     Dosage: UNK
  3. EXJADE [Suspect]
     Indication: MYELODYSPLASTIC SYNDROME
     Dosage: 500 MG, QD
     Route: 048
     Dates: end: 20060601
  4. DANOA [Concomitant]
     Dosage: UNK
     Route: 048
     Dates: start: 20060622
  5. COMPAZINE [Concomitant]
     Indication: NAUSEA
     Dosage: UNK
     Route: 048

REACTIONS (3)
  - DEATH [None]
  - NO THERAPEUTIC RESPONSE [None]
  - REFUSAL OF TREATMENT BY PATIENT [None]
